FAERS Safety Report 10431909 (Version 2)
Quarter: 2014Q4

REPORT INFORMATION
  Report Type: Spontaneous
  Country: US (occurrence: US)
  Receive Date: 20140905
  Receipt Date: 20141119
  Transmission Date: 20150528
  Serious: Yes (Hospitalization, Other)
  Sender: FDA-Public Use
  Company Number: US-JNJFOC-20140823414

PATIENT
  Age: 34 Year
  Sex: Female
  Weight: 80.74 kg

DRUGS (2)
  1. TYLENOL PM [Suspect]
     Active Substance: ACETAMINOPHEN\DIPHENHYDRAMINE
     Indication: SLEEP DISORDER THERAPY
     Dosage: 1-2 BEFORE BED, 1-2 TIMES PER WEEK
     Route: 065
     Dates: start: 20130730, end: 20130806
  2. TYLENOL EXTRA STRENGTH [Suspect]
     Active Substance: ACETAMINOPHEN
     Indication: HEADACHE
     Dosage: 2 AS NEEDED
     Route: 048
     Dates: start: 20130730, end: 20130806

REACTIONS (5)
  - Shock [Unknown]
  - Acute hepatic failure [Unknown]
  - Coagulopathy [Unknown]
  - Tachycardia [Unknown]
  - Leukocytosis [Unknown]

NARRATIVE: CASE EVENT DATE: 20130806
